FAERS Safety Report 7906613-4 (Version None)
Quarter: 2011Q4

REPORT INFORMATION
  Report Type: 
  Country: None (occurrence: None)
  Receive Date: 20111109
  Receipt Date: 20111109
  Transmission Date: 20120403
  Serious: Yes (Life-Threatening, Hospitalization)
  Sender: FDA-Public Use
  Company Number: None

PATIENT
  Sex: Male
  Weight: 92.9874 kg

DRUGS (2)
  1. LOVENOX [Suspect]
     Indication: THROMBOSIS PROPHYLAXIS
     Dosage: DAILY INJECTED  OVER 4-5 DAYS 6-7 YRS AGO
  2. LOVENOX [Suspect]
     Indication: ATRIAL FIBRILLATION
     Dosage: DAILY INJECTED  OVER 4-5 DAYS 6-7 YRS AGO

REACTIONS (1)
  - SKIN HAEMORRHAGE [None]
